FAERS Safety Report 5350031-2 (Version None)
Quarter: 2007Q2

REPORT INFORMATION
  Report Type: 
  Country: None (occurrence: None)
  Receive Date: 20070510
  Receipt Date: 20061102
  Transmission Date: 20071010
  Serious: Yes (Hospitalization)
  Sender: FDA-Public Use
  Company Number: 2006S1000248

PATIENT
  Age: 59 Year
  Sex: Female
  Weight: 85.5 kg

DRUGS (5)
  1. CUBICIN [Suspect]
     Indication: WOUND INFECTION
     Dosage: 350 MG; X1; IV
     Route: 042
     Dates: start: 20061004, end: 20061101
  2. IRON [Concomitant]
  3. PREDNISONE TAB [Concomitant]
  4. INHALATION THERAPY [Concomitant]
  5. VANCOMYCIN [Concomitant]

REACTIONS (4)
  - EXPIRED DRUG ADMINISTERED [None]
  - PYREXIA [None]
  - TACHYCARDIA [None]
  - VOMITING [None]
